FAERS Safety Report 9468937 (Version 1)
Quarter: 2013Q3

REPORT INFORMATION
  Report Type: Spontaneous
  Country: US (occurrence: US)
  Receive Date: 20130821
  Receipt Date: 20130821
  Transmission Date: 20140515
  Serious: Yes (Hospitalization)
  Sender: FDA-Public Use
  Company Number: US-ABBOTT-13P-163-1133499-00

PATIENT
  Age: 28 Year
  Sex: Female

DRUGS (2)
  1. SYNTHROID [Suspect]
     Indication: HYPOTHYROIDISM
     Dates: end: 2013
  2. SYNTHROID [Suspect]
     Indication: HYPOTHYROIDISM
     Dates: start: 2013

REACTIONS (5)
  - Gastric disorder [Recovered/Resolved]
  - Dehydration [Recovered/Resolved]
  - Viral infection [Recovered/Resolved]
  - Heart rate increased [Recovered/Resolved]
  - Blood thyroid stimulating hormone increased [Unknown]
